FAERS Safety Report 5695161-0 (Version None)
Quarter: 2008Q2

REPORT INFORMATION
  Report Type: 
  Country: None (occurrence: None)
  Receive Date: 20080404
  Receipt Date: 20080324
  Transmission Date: 20081010
  Serious: Yes (Hospitalization, Other)
  Sender: FDA-Public Use
  Company Number: US-PFIZER INC-2008026765

PATIENT
  Sex: Female
  Weight: 72.1 kg

DRUGS (3)
  1. DILANTIN [Suspect]
     Indication: CONVULSION
  2. KEPPRA [Suspect]
     Indication: CONVULSION
  3. ZONEGRAN [Suspect]

REACTIONS (3)
  - CONVULSION [None]
  - ILL-DEFINED DISORDER [None]
  - UNEVALUABLE EVENT [None]
